FAERS Safety Report 9326322 (Version 1)
Quarter: 2013Q2

REPORT INFORMATION
  Report Type: Spontaneous
  Country: US (occurrence: US)
  Receive Date: 20130604
  Receipt Date: 20130604
  Transmission Date: 20140414
  Serious: No
  Sender: FDA-Public Use
  Company Number: US-009507513-1306USA000910

PATIENT
  Sex: Female

DRUGS (1)
  1. ZIOPTAN [Suspect]
     Route: 047

REACTIONS (1)
  - Urinary tract infection [Unknown]
